FAERS Safety Report 13965868 (Version 1)
Quarter: 2017Q3

REPORT INFORMATION
  Report Type: Spontaneous
  Country: US (occurrence: US)
  Receive Date: 20170913
  Receipt Date: 20170913
  Transmission Date: 20171128
  Serious: No
  Sender: FDA-Public Use
  Company Number: US-ASTRAZENECA-2017SE93148

PATIENT
  Age: 31407 Day
  Sex: Female
  Weight: 68 kg

DRUGS (1)
  1. ONGLYZA [Suspect]
     Active Substance: SAXAGLIPTIN HYDROCHLORIDE
     Indication: TYPE 2 DIABETES MELLITUS
     Route: 048

REACTIONS (6)
  - Pain in extremity [Unknown]
  - Blood glucose increased [Unknown]
  - Drug ineffective [Unknown]
  - Hypoacusis [Unknown]
  - Weight decreased [Unknown]
  - Malaise [Unknown]
